FAERS Safety Report 21266022 (Version 1)
Quarter: 2022Q3

REPORT INFORMATION
  Report Type: Spontaneous
  Country: US (occurrence: US)
  Receive Date: 20220829
  Receipt Date: 20220829
  Transmission Date: 20221027
  Serious: Yes (Other)
  Sender: FDA-Public Use
  Company Number: US-PFIZER INC-PV202200050834

PATIENT
  Age: 66 Year
  Sex: Male

DRUGS (1)
  1. INLYTA [Suspect]
     Active Substance: AXITINIB
     Indication: Clear cell renal cell carcinoma
     Dosage: 5 MG

REACTIONS (15)
  - Second primary malignancy [Unknown]
  - Lung adenocarcinoma stage I [Unknown]
  - Weight decreased [Unknown]
  - Dysphagia [Unknown]
  - Dyspnoea exertional [Unknown]
  - Hypophagia [Unknown]
  - Retching [Unknown]
  - Feeding disorder [Unknown]
  - Lethargy [Unknown]
  - Somnolence [Unknown]
  - Feeling abnormal [Unknown]
  - Muscle spasms [Unknown]
  - Asthenia [Unknown]
  - Arthralgia [Unknown]
  - Fatigue [Unknown]
